FAERS Safety Report 8890037 (Version 5)
Quarter: 2013Q2

REPORT INFORMATION
  Report Type: Spontaneous
  Country: US (occurrence: US)
  Receive Date: 20121107
  Receipt Date: 20130523
  Transmission Date: 20140414
  Serious: Yes (Hospitalization, Disabling, Other)
  Sender: FDA-Public Use
  Company Number: US-009507513-1211USA001611

PATIENT
  Sex: Female
  Weight: 76.64 kg

DRUGS (9)
  1. FOSAMAX [Suspect]
     Indication: OSTEOPENIA
     Dosage: 70 MG, QW
     Route: 048
     Dates: start: 200604, end: 200704
  2. FOSAMAX [Suspect]
     Indication: OSTEOPOROSIS
     Route: 048
  3. FOSAMAX PLUS D [Suspect]
     Indication: OSTEOPENIA
     Dosage: 70 MG, QW
     Route: 048
     Dates: start: 200704, end: 20110627
  4. ALENDRONATE SODIUM [Suspect]
     Dosage: 70 MG, UNK
  5. NEXIUM [Concomitant]
     Indication: GASTROOESOPHAGEAL REFLUX DISEASE
     Dosage: 40 MG, QD
  6. LIPITOR [Concomitant]
     Indication: HYPERCHOLESTEROLAEMIA
     Dosage: 10-20 MG QD
     Route: 048
  7. SINGULAIR [Concomitant]
     Indication: ASTHMA
     Dosage: 10 MG, QD
     Route: 048
  8. OMEPRAZOLE [Concomitant]
     Indication: GASTROOESOPHAGEAL REFLUX DISEASE
     Dosage: 20 MG, QD
     Route: 048
  9. ASMANEX TWISTHALER [Concomitant]
     Indication: ASTHMA
     Dosage: 2 PUFF AT HS
     Route: 055

REACTIONS (14)
  - Low turnover osteopathy [Unknown]
  - Asthma [Unknown]
  - Femur fracture [Recovered/Resolved]
  - Vitamin D deficiency [Unknown]
  - Breast disorder female [Unknown]
  - Essential hypertension [Unknown]
  - Polyarthritis [Unknown]
  - Arthritis [Unknown]
  - Gait disturbance [Unknown]
  - Bursitis [Unknown]
  - Fibromyalgia [Unknown]
  - Depression [Unknown]
  - Nuclear magnetic resonance imaging abnormal [Unknown]
  - Back pain [Unknown]
